FAERS Safety Report 4597750-3 (Version None)
Quarter: 2005Q1

REPORT INFORMATION
  Report Type: 
  Country: None (occurrence: None)
  Receive Date: 20050125
  Receipt Date: 20041103
  Transmission Date: 20050727
  Serious: No
  Sender: FDA-Public Use
  Company Number: USA040876757

PATIENT
  Age: 75 Year
  Sex: Female
  Weight: 70 kg

DRUGS (11)
  1. FORTEO [Suspect]
     Indication: OSTEOPOROSIS
     Dosage: 20 UG DAY
     Dates: start: 20040820
  2. PROZAC [Concomitant]
  3. PRILOSEC (OMEPRAZOLE RATIOPHARM) [Concomitant]
  4. LEVOXYL [Concomitant]
  5. DILTIAZEM [Concomitant]
  6. CELEBREX [Concomitant]
  7. VICODIN [Concomitant]
  8. ULTRAM [Concomitant]
  9. DITROPAN [Concomitant]
  10. TRAZODONE HCL [Concomitant]
  11. ARTANE [Concomitant]

REACTIONS (7)
  - ANOREXIA [None]
  - GASTROOESOPHAGEAL REFLUX DISEASE [None]
  - HAEMANGIOMA OF LIVER [None]
  - NAUSEA [None]
  - PAIN [None]
  - STOMACH DISCOMFORT [None]
  - VOMITING [None]
